FAERS Safety Report 25150190 (Version 2)
Quarter: 2025Q2

REPORT INFORMATION
  Report Type: Spontaneous
  Country: CN (occurrence: CN)
  Receive Date: 20250402
  Receipt Date: 20250414
  Transmission Date: 20250717
  Serious: Yes (Other)
  Sender: NOVARTIS
  Company Number: CN-002147023-NVSC2025CN053068

PATIENT
  Age: 74 Year
  Sex: Male
  Weight: 52.5 kg

DRUGS (1)
  1. COSENTYX [Suspect]
     Active Substance: SECUKINUMAB
     Indication: Psoriasis
     Dosage: UNK, QMO (ONE NEEDLE A MONTH)
     Route: 065
     Dates: start: 202403

REACTIONS (1)
  - Mediastinum neoplasm [Unknown]

NARRATIVE: CASE EVENT DATE: 20250201
